FAERS Safety Report 18341238 (Version 1)
Quarter: 2020Q4

REPORT INFORMATION
  Report Type: Spontaneous
  Country: FR (occurrence: FR)
  Receive Date: 20201003
  Receipt Date: 20201003
  Transmission Date: 20210113
  Serious: Yes (Hospitalization)
  Sender: FDA-Public Use
  Company Number: FR-TEVA-2020-FR-1833818

PATIENT
  Age: 54 Year
  Sex: Male
  Weight: 89 kg

DRUGS (2)
  1. FLUOROURACILE [Concomitant]
     Active Substance: FLUOROURACIL
  2. OXALIPLATINE [Suspect]
     Active Substance: OXALIPLATIN
     Indication: COLON ADENOMA
     Dosage: UNIT DOSE 135MG
     Route: 041
     Dates: start: 20200616, end: 20200805

REACTIONS (6)
  - Aplasia pure red cell [Recovering/Resolving]
  - Autoimmune haemolytic anaemia [Recovering/Resolving]
  - Hyperleukocytosis [Recovering/Resolving]
  - Disseminated intravascular coagulation [Recovering/Resolving]
  - Acute kidney injury [Recovering/Resolving]
  - Parkinson^s disease [Recovering/Resolving]

NARRATIVE: CASE EVENT DATE: 20200806
